FAERS Safety Report 23381837 (Version 1)
Quarter: 2024Q1

REPORT INFORMATION
  Report Type: Spontaneous
  Country: None (occurrence: FR)
  Receive Date: 20240109
  Receipt Date: 20240109
  Transmission Date: 20240410
  Serious: No
  Sender: FDA-Public Use
  Company Number: FR-Harrow Eye-2150684

PATIENT
  Age: 7 Year
  Sex: Male

DRUGS (2)
  1. VERKAZIA [Suspect]
     Active Substance: CYCLOSPORINE
     Indication: Keratitis
     Route: 047
  2. Vitamin A Retinol Ointment [Concomitant]

REACTIONS (3)
  - Off label use [None]
  - Therapy interrupted [None]
  - Product availability issue [None]
